FAERS Safety Report 6681212-3 (Version None)
Quarter: 2010Q2

REPORT INFORMATION
  Report Type: 
  Country: None (occurrence: None)
  Receive Date: 20100414
  Receipt Date: 20091005
  Transmission Date: 20101027
  Serious: No
  Sender: FDA-Public Use
  Company Number: US-KINGPHARMUSA00001-K200901236

PATIENT
  Age: 70 Year
  Sex: Female
  Weight: 77.098 kg

DRUGS (2)
  1. SKELAXIN [Suspect]
     Indication: HEADACHE
     Dosage: 400 MG, QD
     Route: 048
     Dates: start: 20091001, end: 20091001
  2. SKELAXIN [Suspect]
     Indication: NECK PAIN

REACTIONS (2)
  - DRUG INEFFECTIVE [None]
  - HEADACHE [None]
